FAERS Safety Report 6921726-1 (Version None)
Quarter: 2010Q3

REPORT INFORMATION
  Report Type: 
  Country: None (occurrence: None)
  Receive Date: 20100812
  Receipt Date: 20100802
  Transmission Date: 20110219
  Serious: Yes (Other)
  Sender: FDA-Public Use
  Company Number: US-GENZYME-CLOF-1001111

PATIENT
  Age: 18 Year
  Sex: Male
  Weight: 117 kg

DRUGS (1)
  1. CLOLAR [Suspect]
     Indication: ACUTE LYMPHOCYTIC LEUKAEMIA
     Dosage: UNK UNK, UNK
     Route: 065
     Dates: start: 20100730, end: 20100731

REACTIONS (2)
  - MALAISE [None]
  - RESPIRATORY DISORDER [None]
